FAERS Safety Report 4722317-3 (Version None)
Quarter: 2005Q3

REPORT INFORMATION
  Report Type: 
  Country: None (occurrence: None)
  Receive Date: 20050722
  Receipt Date: 20041022
  Transmission Date: 20060218
  Serious: No
  Sender: FDA-Public Use
  Company Number: US-GLAXOSMITHKLINE-A0530916A

PATIENT
  Age: 80 Year
  Sex: Female

DRUGS (7)
  1. AVANDIA [Suspect]
     Dosage: 4MG TWICE PER DAY
     Route: 048
     Dates: start: 20040401
  2. GLIPIZIDE [Concomitant]
  3. DIGOXIN [Concomitant]
  4. TOPROL-XL [Concomitant]
  5. ECOTRIN [Concomitant]
  6. PROTONIX [Concomitant]
  7. LIPITOR [Concomitant]

REACTIONS (3)
  - MUSCLE SPASMS [None]
  - POLLAKIURIA [None]
  - SWELLING [None]
